FAERS Safety Report 4363198-X (Version None)
Quarter: 2004Q2

REPORT INFORMATION
  Report Type: 
  Country: None (occurrence: None)
  Receive Date: 20040518
  Receipt Date: 20040506
  Transmission Date: 20050107
  Serious: Yes (Other)
  Sender: FDA-Public Use
  Company Number: GB-JNJFOC-20040203651

PATIENT
  Age: 15 Year
  Sex: Male
  Weight: 56.5 kg

DRUGS (1)
  1. CONCERTA [Suspect]
     Indication: ATTENTION DEFICIT/HYPERACTIVITY DISORDER
     Dosage: 54 MG; 72 MG, 1 IN 1 DAY,
     Dates: start: 20030201

REACTIONS (3)
  - BACK PAIN [None]
  - HAEMATURIA [None]
  - RENAL PAIN [None]
